FAERS Safety Report 13987010 (Version 2)
Quarter: 2017Q4

REPORT INFORMATION
  Report Type: Report from Study
  Country: ES (occurrence: ES)
  Receive Date: 20170919
  Receipt Date: 20171005
  Transmission Date: 20180321
  Serious: Yes (Death)
  Sender: FDA-Public Use
  Company Number: ES-CELGENEUS-ESP-20170902979

PATIENT
  Age: 74 Year
  Sex: Male

DRUGS (6)
  1. AMLODIPINE [Concomitant]
     Active Substance: AMLODIPINE BESYLATE
     Indication: HYPERTENSION
     Dosage: 5 MILLIGRAM
     Route: 048
     Dates: end: 20170912
  2. ENALAPRIL/LERCANIDIPINE [Concomitant]
     Indication: HYPERTENSION
     Dosage: 1 PILL
     Route: 048
     Dates: end: 20170912
  3. VENTOLIN [Concomitant]
     Active Substance: ALBUTEROL SULFATE
     Indication: ASTHMA
     Route: 055
     Dates: end: 20170912
  4. AZACITIDINE. [Suspect]
     Active Substance: AZACITIDINE
     Indication: ACUTE MYELOID LEUKAEMIA
     Dosage: 1335 MILLIGRAM
     Route: 058
     Dates: start: 20170905, end: 20170910
  5. ACFOL [Concomitant]
     Active Substance: FOLIC ACID
     Indication: ANAEMIA PROPHYLAXIS
     Dosage: 1 PILL
     Route: 048
     Dates: end: 20170912
  6. BUDESONIDA [Concomitant]
     Indication: ASTHMA
     Dosage: 2 PUFF
     Route: 055
     Dates: end: 20170912

REACTIONS (1)
  - Cerebral haemorrhage [Fatal]

NARRATIVE: CASE EVENT DATE: 20170911
